FAERS Safety Report 24081965 (Version 1)
Quarter: 2024Q3

REPORT INFORMATION
  Report Type: Spontaneous
  Country: IE (occurrence: IE)
  Receive Date: 20240712
  Receipt Date: 20240712
  Transmission Date: 20241016
  Serious: Yes (Other)
  Sender: UCB
  Company Number: IE-UCBSA-2024035149

PATIENT
  Sex: Female

DRUGS (1)
  1. NEUPRO [Suspect]
     Active Substance: ROTIGOTINE
     Indication: Product used for unknown indication
     Dosage: UNK

REACTIONS (2)
  - Lung neoplasm malignant [Not Recovered/Not Resolved]
  - Application site pruritus [Not Recovered/Not Resolved]
